FAERS Safety Report 7586147-X (Version None)
Quarter: 2011Q2

REPORT INFORMATION
  Report Type: 
  Country: None (occurrence: None)
  Receive Date: 20110624
  Receipt Date: 20110615
  Transmission Date: 20111010
  Serious: Yes (Other)
  Sender: FDA-Public Use
  Company Number: 2011SP028206

PATIENT
  Sex: Female

DRUGS (1)
  1. DESLORATADINE [Suspect]
     Indication: RHINITIS ALLERGIC
     Dates: end: 20110601

REACTIONS (2)
  - VENTRICULAR EXTRASYSTOLES [None]
  - PALPITATIONS [None]
